FAERS Safety Report 16568889 (Version 1)
Quarter: 2019Q3

REPORT INFORMATION
  Report Type: Report from Study
  Country: ES (occurrence: ES)
  Receive Date: 20190713
  Receipt Date: 20190713
  Transmission Date: 20191004
  Serious: Yes (Hospitalization)
  Sender: FDA-Public Use
  Company Number: ES-TEVA-2019-ES-1075886

PATIENT
  Age: 35 Year
  Sex: Male

DRUGS (2)
  1. DEXAMETASONA [Interacting]
     Active Substance: DEXAMETHASONE
     Indication: ACUTE LYMPHOCYTIC LEUKAEMIA
     Route: 065
     Dates: start: 2005, end: 2008
  2. PREDNISONA [Suspect]
     Active Substance: PREDNISONE
     Indication: ACUTE LYMPHOCYTIC LEUKAEMIA
     Route: 065
     Dates: start: 2005, end: 2008

REACTIONS (2)
  - Drug interaction [Unknown]
  - Bone infarction [Recovered/Resolved with Sequelae]

NARRATIVE: CASE EVENT DATE: 2015
